FAERS Safety Report 8387678-5 (Version None)
Quarter: 2012Q2

REPORT INFORMATION
  Report Type: 
  Country: None (occurrence: None)
  Receive Date: 20120525
  Receipt Date: 20120522
  Transmission Date: 20120825
  Serious: No
  Sender: FDA-Public Use
  Company Number: US-PFIZER INC-2012124050

PATIENT
  Sex: Female
  Weight: 52.154 kg

DRUGS (1)
  1. ADVIL [Suspect]
     Dosage: 2 CAPSULES, AS NEEDED
     Route: 048
     Dates: start: 20120101, end: 20120401

REACTIONS (1)
  - DRUG INEFFECTIVE [None]
